FAERS Safety Report 8454339-3 (Version None)
Quarter: 2012Q2

REPORT INFORMATION
  Report Type: 
  Country: None (occurrence: None)
  Receive Date: 20120621
  Receipt Date: 20120503
  Transmission Date: 20120825
  Serious: No
  Sender: FDA-Public Use
  Company Number: US-ALLERGAN-1203987US

PATIENT
  Age: 60 Year
  Sex: Male

DRUGS (2)
  1. HYPERTONIC SALINE OINTMENT [Concomitant]
     Indication: DRY EYE
     Dosage: 2 GTT, QHS
     Route: 047
  2. LUMIGAN [Suspect]
     Indication: GLAUCOMA
     Dosage: 2 GTT, QHS
     Route: 047
     Dates: start: 20111201, end: 20120316

REACTIONS (2)
  - EYE PAIN [None]
  - EYE IRRITATION [None]
